FAERS Safety Report 6152734-9 (Version None)
Quarter: 2009Q2

REPORT INFORMATION
  Report Type: 
  Country: None (occurrence: None)
  Receive Date: 20090413
  Receipt Date: 20090402
  Transmission Date: 20091009
  Serious: Yes (Hospitalization, Other)
  Sender: FDA-Public Use
  Company Number: US-ROCHE-619142

PATIENT
  Sex: Male
  Weight: 96.2 kg

DRUGS (6)
  1. CAPECITABINE [Suspect]
     Indication: COLORECTAL CANCER
     Route: 048
     Dates: start: 20081223, end: 20090301
  2. CAPECITABINE [Suspect]
     Route: 048
     Dates: start: 20090401
  3. CASODEX [Concomitant]
  4. COREG [Concomitant]
  5. GABAPENTIN [Concomitant]
  6. PAXIL [Concomitant]

REACTIONS (6)
  - DRY SKIN [None]
  - FATIGUE [None]
  - NASOPHARYNGITIS [None]
  - PARAESTHESIA [None]
  - PNEUMONIA [None]
  - WHITE BLOOD CELL COUNT INCREASED [None]
